FAERS Safety Report 8905515 (Version 2)
Quarter: 2013Q1

REPORT INFORMATION
  Report Type: Spontaneous
  Country: US (occurrence: US)
  Receive Date: 20121113
  Receipt Date: 20130312
  Transmission Date: 20140127
  Serious: No
  Sender: FDA-Public Use
  Company Number: US-ASTRAZENECA-2012SE82376

PATIENT
  Age: 89 Year
  Sex: Male

DRUGS (3)
  1. BRILINTA [Suspect]
     Route: 048
     Dates: start: 20120905
  2. METOPROLOL [Suspect]
     Indication: HEART RATE ABNORMAL
     Route: 048
  3. ASA [Concomitant]

REACTIONS (1)
  - Malaise [Unknown]
